FAERS Safety Report 4433420-X (Version None)
Quarter: 2004Q3

REPORT INFORMATION
  Report Type: 
  Country: None (occurrence: None)
  Receive Date: 20040824
  Receipt Date: 20040817
  Transmission Date: 20050211
  Serious: Yes (Death, Life-Threatening, Hospitalization)
  Sender: FDA-Public Use
  Company Number: GB-JNJFOC-20040805131

PATIENT
  Age: 52 Year
  Sex: Female

DRUGS (7)
  1. REMICADE [Suspect]
     Indication: RHEUMATOID ARTHRITIS
     Dosage: 200 MG, INTRAVENOUS
     Route: 042
     Dates: start: 20021004, end: 20040101
  2. METHOTREXATE [Concomitant]
  3. FOLIC ACID [Concomitant]
  4. BENORAL (BENORILATE) [Concomitant]
  5. LOSEC (OMEPRAZOLE) [Concomitant]
  6. CALCICHEW (CALCIUM CARBONATE) [Concomitant]
  7. PREDNSILONE (PREDNSILONE) [Concomitant]

REACTIONS (1)
  - MEDIASTINAL MASS [None]
